FAERS Safety Report 12904337 (Version 1)
Quarter: 2016Q4

REPORT INFORMATION
  Report Type: Spontaneous
  Country: FI (occurrence: FI)
  Receive Date: 20161102
  Receipt Date: 20161102
  Transmission Date: 20170207
  Serious: Yes (Other)
  Sender: FDA-Public Use
  Company Number: FI-JNJFOC-20161024935

PATIENT

DRUGS (2)
  1. INFLIXIMAB, RECOMBINANT [Suspect]
     Active Substance: INFLIXIMAB
     Indication: INFLAMMATORY BOWEL DISEASE
     Route: 042
  2. ADALIMUMAB [Suspect]
     Active Substance: ADALIMUMAB
     Indication: INFLAMMATORY BOWEL DISEASE
     Route: 065

REACTIONS (10)
  - Urticaria [Unknown]
  - Surgery [Unknown]
  - Arthralgia [Unknown]
  - Drug ineffective [Unknown]
  - Faecal calprotectin decreased [Unknown]
  - Serum sickness [Unknown]
  - Hepatic enzyme increased [Unknown]
  - Systemic lupus erythematosus [Unknown]
  - Skin reaction [Unknown]
  - Hypersensitivity [Unknown]
